FAERS Safety Report 5781736-7 (Version None)
Quarter: 2008Q2

REPORT INFORMATION
  Report Type: 
  Country: None (occurrence: None)
  Receive Date: 20080623
  Receipt Date: 20080613
  Transmission Date: 20081010
  Serious: Yes (Hospitalization)
  Sender: FDA-Public Use
  Company Number: SK-AMGEN-UK260062

PATIENT
  Sex: Male

DRUGS (10)
  1. PANITUMUMAB [Suspect]
     Indication: COLORECTAL CANCER
     Route: 042
     Dates: start: 20070502
  2. IRINOTECAN HCL [Suspect]
     Route: 065
  3. ONDANSETRON [Concomitant]
     Route: 042
  4. IMODIUM [Concomitant]
     Route: 048
  5. CEFUROXIME [Concomitant]
     Route: 048
     Dates: start: 20070510, end: 20070516
  6. IBUROFEN [Concomitant]
     Route: 048
     Dates: start: 20070718
  7. ASPIRIN [Concomitant]
     Route: 061
  8. BORIC ACID/SODIUM CHLORIDE [Concomitant]
     Route: 061
  9. ACETAMINOPHEN [Concomitant]
     Route: 048
  10. DITHIADEN [Concomitant]
     Route: 042

REACTIONS (2)
  - DEHYDRATION [None]
  - DIARRHOEA [None]
